FAERS Safety Report 23743179 (Version 1)
Quarter: 2024Q2

REPORT INFORMATION
  Report Type: Spontaneous
  Country: US (occurrence: US)
  Receive Date: 20240415
  Receipt Date: 20240415
  Transmission Date: 20240717
  Serious: Yes (Hospitalization)
  Sender: FDA-Public Use
  Company Number: US-PFIZER INC-202400073574

PATIENT
  Age: 79 Year
  Sex: Female

DRUGS (6)
  1. BRAFTOVI [Suspect]
     Active Substance: ENCORAFENIB
     Dosage: D1-28 Q28
     Dates: start: 20240319
  2. MORPHINE SULFATE [Suspect]
     Active Substance: MORPHINE SULFATE
  3. CETUXIMAB [Suspect]
     Active Substance: CETUXIMAB
     Dosage: (D1, 8, 15, 22)
  4. ELIQUIS [Concomitant]
     Active Substance: APIXABAN
     Dosage: 1 (5 MG) TABLET ORAL B.I.D. (TWICE PER DAY)
     Route: 048
     Dates: start: 20230627
  5. NIVESTYM [FILGRASTIM] [Concomitant]
     Dosage: 480 MCG (OF 480 MCG/1. 6 ML) INJECTION DAILY FOR 1 DAY
     Dates: start: 20230901, end: 20230925
  6. NIVESTYM [FILGRASTIM] [Concomitant]
     Dosage: 480 MCG (OF 480 MCG/0.8ML) INJECTION DAILY FOR 1 DAY
     Dates: start: 20231103, end: 20240203

REACTIONS (1)
  - Encephalopathy [Unknown]
